FAERS Safety Report 8251986-9 (Version None)
Quarter: 2012Q2

REPORT INFORMATION
  Report Type: 
  Country: None (occurrence: None)
  Receive Date: 20120402
  Receipt Date: 20120330
  Transmission Date: 20120825
  Serious: Yes (Death, Other)
  Sender: FDA-Public Use
  Company Number: PHHY2012US027626

PATIENT
  Age: 71 Year
  Sex: Female

DRUGS (2)
  1. VANCOMYCIN [Suspect]
  2. TELAVANCIN HYDROCHLORIDE [Suspect]

REACTIONS (4)
  - STAPHYLOCOCCAL INFECTION [None]
  - RENAL FAILURE ACUTE [None]
  - ARTHRITIS BACTERIAL [None]
  - GASTROINTESTINAL HAEMORRHAGE [None]
